FAERS Safety Report 18895660 (Version 1)
Quarter: 2021Q1

REPORT INFORMATION
  Report Type: Spontaneous
  Country: DE (occurrence: DE)
  Receive Date: 20210216
  Receipt Date: 20210216
  Transmission Date: 20210420
  Serious: Yes (Other)
  Sender: FDA-Public Use
  Company Number: DE-BIOGEN-2020BI00922664

PATIENT
  Sex: Female

DRUGS (1)
  1. TECFIDERA [Suspect]
     Active Substance: DIMETHYL FUMARATE
     Indication: PATERNAL EXPOSURE TIMING UNSPECIFIED
     Route: 065
     Dates: start: 20160206

REACTIONS (2)
  - Paternal exposure before pregnancy [Recovered/Resolved]
  - Complication of delivery [Recovered/Resolved]

NARRATIVE: CASE EVENT DATE: 20200928
